FAERS Safety Report 14803874 (Version 1)
Quarter: 2018Q2

REPORT INFORMATION
  Report Type: Spontaneous
  Country: US (occurrence: US)
  Receive Date: 20180425
  Receipt Date: 20180425
  Transmission Date: 20180711
  Serious: No
  Sender: FDA-Public Use
  Company Number: US-CIPLA LTD.-2016US05619

PATIENT

DRUGS (1)
  1. HYDROXYZINE [Suspect]
     Active Substance: HYDROXYZINE HYDROCHLORIDE
     Indication: INSOMNIA
     Dosage: 25 MG, UNK (ONE YEAR)
     Route: 048

REACTIONS (5)
  - Headache [Unknown]
  - Back pain [Unknown]
  - Neck pain [Unknown]
  - Vision blurred [Unknown]
  - Aggression [Unknown]
